FAERS Safety Report 19740822 (Version 1)
Quarter: 2021Q3

REPORT INFORMATION
  Report Type: Spontaneous
  Country: US (occurrence: US)
  Receive Date: 20210825
  Receipt Date: 20210825
  Transmission Date: 20211014
  Serious: Yes (Life-Threatening, Hospitalization, Other)
  Sender: FDA-Public Use
  Company Number: US-AUROBINDO-AUR-APL-2021-035241

PATIENT
  Age: 74 Year
  Sex: Female

DRUGS (2)
  1. DEXAMETHASONE. [Suspect]
     Active Substance: DEXAMETHASONE
     Indication: BRAIN OEDEMA
     Dosage: 4 MILLIGRAM, TWO TIMES A DAY
     Route: 065
  2. AMPHOTERICIN B. [Suspect]
     Active Substance: AMPHOTERICIN B
     Indication: MUCORMYCOSIS
     Dosage: UNK
     Route: 065

REACTIONS (12)
  - Mucormycosis [Recovered/Resolved]
  - Hypokalaemia [Recovered/Resolved]
  - Septic shock [Recovered/Resolved]
  - Exophthalmos [Recovered/Resolved]
  - Mental disorder [Recovered/Resolved]
  - Staphylococcal infection [Recovered/Resolved]
  - Stenotrophomonas infection [Recovered/Resolved]
  - Herpes virus infection [Recovered/Resolved]
  - Visual impairment [Recovered/Resolved]
  - Condition aggravated [Recovered/Resolved]
  - Ophthalmoplegia [Recovered/Resolved]
  - Hyperglycaemic hyperosmolar nonketotic syndrome [Recovered/Resolved]
